FAERS Safety Report 14109741 (Version 1)
Quarter: 2017Q4

REPORT INFORMATION
  Report Type: Spontaneous
  Country: ZA (occurrence: ZA)
  Receive Date: 20171020
  Receipt Date: 20171020
  Transmission Date: 20180321
  Serious: Yes (Other)
  Sender: FDA-Public Use
  Company Number: ZA-BAXTER-2017BAX035364

PATIENT
  Age: 39 Year
  Sex: Female

DRUGS (3)
  1. ENDOXAN VIAL 1G [Suspect]
     Active Substance: CYCLOPHOSPHAMIDE
     Indication: RHEUMATOID ARTHRITIS
     Dosage: RECEIVED FOR 12 YEARS
     Route: 065
  2. MTCN (METHOTREXATE) [Suspect]
     Active Substance: METHOTREXATE
     Indication: RHEUMATOID ARTHRITIS
     Route: 065
     Dates: start: 1996, end: 2010
  3. METHOTREXATE. [Suspect]
     Active Substance: METHOTREXATE
     Indication: RHEUMATOID ARTHRITIS
     Route: 065
     Dates: start: 1996

REACTIONS (2)
  - Therapy non-responder [Unknown]
  - Deformity [Unknown]

NARRATIVE: CASE EVENT DATE: 1998
